FAERS Safety Report 14558004 (Version 2)
Quarter: 2018Q1

REPORT INFORMATION
  Report Type: Spontaneous
  Country: JP (occurrence: JP)
  Receive Date: 20180221
  Receipt Date: 20180319
  Transmission Date: 20180509
  Serious: Yes (Hospitalization)
  Sender: FDA-Public Use
  Company Number: JP-ELI_LILLY_AND_COMPANY-JP201802003498

PATIENT
  Age: 55 Year
  Sex: Male

DRUGS (10)
  1. OLMETEC [Concomitant]
     Active Substance: OLMESARTAN MEDOXOMIL
  2. TALTZ [Suspect]
     Active Substance: IXEKIZUMAB
     Dosage: 80 MG, OTHER
     Route: 058
     Dates: end: 20171221
  3. ZYLORIC [Concomitant]
     Active Substance: ALLOPURINOL
  4. TALTZ [Suspect]
     Active Substance: IXEKIZUMAB
     Indication: PSORIASIS
     Dosage: 160 MG, SINGLE
     Route: 058
     Dates: start: 20171207, end: 20171207
  5. FAMOTIDINE. [Concomitant]
     Active Substance: FAMOTIDINE
  6. BAYASPIRIN [Concomitant]
     Active Substance: ASPIRIN
  7. BELSOMRA [Concomitant]
     Active Substance: SUVOREXANT
  8. ZOLPIDEM [Concomitant]
     Active Substance: ZOLPIDEM\ZOLPIDEM TARTRATE
  9. CONIEL [Concomitant]
     Active Substance: BENIDIPINE HYDROCHLORIDE
  10. LASIX [Concomitant]
     Active Substance: FUROSEMIDE

REACTIONS (1)
  - Colitis [Recovered/Resolved]

NARRATIVE: CASE EVENT DATE: 20171207
